FAERS Safety Report 9475910 (Version 2)
Quarter: 2013Q4

REPORT INFORMATION
  Report Type: Spontaneous
  Country: US (occurrence: US)
  Receive Date: 20130826
  Receipt Date: 20131122
  Transmission Date: 20140711
  Serious: Yes (Hospitalization)
  Sender: FDA-Public Use
  Company Number: US-BAYER-2013-102419

PATIENT
  Age: 49 Year
  Sex: Female
  Weight: 58.96 kg

DRUGS (8)
  1. YASMIN [Suspect]
     Indication: PREMENSTRUAL SYNDROME
     Dosage: UNK
     Dates: start: 200501, end: 200607
  2. YASMIN [Suspect]
     Indication: MENORRHAGIA
  3. HYDROCODONE/ACETAMINOPHEN [Concomitant]
     Dosage: 5/500
     Route: 048
     Dates: start: 20060508
  4. ACETAMINOPHEN W/CODEINE [Concomitant]
     Dosage: UNK
     Route: 048
     Dates: start: 20060512
  5. CIPROFLOXACIN [Concomitant]
     Dosage: 250 MG, UNK
     Route: 048
     Dates: start: 20060512
  6. SULFAMETHOXAZOLE/TRIMETHOPRIM [Concomitant]
     Dosage: UNK
     Route: 048
     Dates: start: 20060524
  7. OXYCODONE/APAP [Concomitant]
     Dosage: 3/325
     Route: 048
     Dates: start: 20060717
  8. LEVAQUIN [Concomitant]
     Dosage: 500 MG, UNK
     Route: 048
     Dates: start: 20060717

REACTIONS (1)
  - Pulmonary embolism [Recovered/Resolved]
